FAERS Safety Report 19814027 (Version 1)
Quarter: 2021Q3

REPORT INFORMATION
  Report Type: Spontaneous
  Country: US (occurrence: US)
  Receive Date: 20210909
  Receipt Date: 20210909
  Transmission Date: 20211014
  Serious: Yes (Hospitalization, Other)
  Sender: FDA-Public Use
  Company Number: US-VIIV HEALTHCARE LIMITED-US2021GSK162757

PATIENT
  Age: 51 Year
  Sex: Female

DRUGS (4)
  1. TRIMETHOPRIM + SULFAMETHOXAZOLE [Suspect]
     Active Substance: SULFAMETHOXAZOLE\TRIMETHOPRIM
     Indication: PROPHYLACTIC CHEMOTHERAPY
     Dosage: 3 TIMES WEEKLY
     Route: 048
  2. LAMIVUDINE AND ZIDOVUDINE [Suspect]
     Active Substance: LAMIVUDINE\ZIDOVUDINE
     Indication: ANTIRETROVIRAL THERAPY
     Dosage: UNK
  3. LOPINAVIR+RITONAVIR [Suspect]
     Active Substance: LOPINAVIR\RITONAVIR
     Indication: ANTIRETROVIRAL THERAPY
     Dosage: UNK
  4. TRIMETHOPRIM + SULFAMETHOXAZOLE [Suspect]
     Active Substance: SULFAMETHOXAZOLE\TRIMETHOPRIM
     Indication: ANTIFUNGAL PROPHYLAXIS
     Dosage: UNK
     Route: 048

REACTIONS (21)
  - Granulomatous pneumonitis [Recovering/Resolving]
  - Malaise [Recovered/Resolved]
  - Pleural effusion [Recovered/Resolved]
  - Lymphadenopathy mediastinal [Recovered/Resolved]
  - Chills [Recovered/Resolved]
  - Pulmonary mass [Recovering/Resolving]
  - Pulmonary fibrosis [Recovering/Resolving]
  - Cough [Recovered/Resolved]
  - Nausea [Recovered/Resolved]
  - Vomiting [Recovered/Resolved]
  - Bronchial neoplasm benign [Recovering/Resolving]
  - Productive cough [Recovered/Resolved]
  - Pneumocystis jirovecii pneumonia [Recovering/Resolving]
  - Fatigue [Recovered/Resolved]
  - Dyspnoea [Recovered/Resolved]
  - Hilar lymphadenopathy [Recovered/Resolved]
  - Dyspnoea exertional [Recovered/Resolved]
  - Pyrexia [Recovered/Resolved]
  - Atelectasis [Recovering/Resolving]
  - Pulmonary cavitation [Recovering/Resolving]
  - Pulmonary necrosis [Recovering/Resolving]
